FAERS Safety Report 10290299 (Version 2)
Quarter: 2014Q3

REPORT INFORMATION
  Report Type: Spontaneous
  Country: FR (occurrence: None)
  Receive Date: 20140708
  Receipt Date: 20140821
  Transmission Date: 20150326
  Serious: Yes (Hospitalization)
  Sender: FDA-Public Use
  Company Number: AUR-APL-2014-07101

PATIENT
  Age: 74 Year
  Sex: Female

DRUGS (9)
  1. METFORMIN (METFORMIN) UNKNOWN, UNKNOWN [Suspect]
     Active Substance: METFORMIN HYDROCHLORIDE
     Indication: TYPE 2 DIABETES MELLITUS
     Route: 048
     Dates: end: 20101211
  2. NEORECORMON(EPOETIN BETA) [Concomitant]
  3. FLUOROURACIL (FLUOROURACIL) [Suspect]
     Active Substance: FLUOROURACIL
     Indication: COLORECTAL ADENOCARCINOMA
     Route: 042
     Dates: start: 20100701
  4. SOTALOL HYDROCHLORIDE (SOTALOL HYDROCHLORIDE) [Suspect]
     Active Substance: SOTALOL HYDROCHLORIDE
     Indication: ATRIAL FIBRILLATION
     Route: 048
     Dates: end: 20101211
  5. PERINDOPRIL (PERINDOPRIL) [Suspect]
     Active Substance: PERINDOPRIL
     Indication: HYPERTENSION
     Route: 048
     Dates: end: 20101211
  6. FOLINIC ACID (FOLINIC ACID) [Concomitant]
  7. OXALIPLATIN (OXALIPLATIN) [Suspect]
     Active Substance: OXALIPLATIN
     Indication: COLORECTAL ADENOCARCINOMA
     Route: 042
     Dates: start: 20100701
  8. EZETIMIBE (EZETIMIBE) (TABLET) [Suspect]
     Active Substance: EZETIMIBE
     Indication: HYPERLIPIDAEMIA
     Route: 048
     Dates: end: 20101211
  9. TARDYFERON(FERROUS SULFATE) [Concomitant]

REACTIONS (7)
  - Bradycardia [None]
  - Renal failure acute [None]
  - General physical health deterioration [None]
  - Presyncope [None]
  - Dehydration [None]
  - Hypotension [None]
  - Haemodialysis [None]

NARRATIVE: CASE EVENT DATE: 20101211
